FAERS Safety Report 9496148 (Version 1)
Quarter: 2013Q3

REPORT INFORMATION
  Report Type: Report from Study
  Country: IL (occurrence: IL)
  Receive Date: 20130904
  Receipt Date: 20130904
  Transmission Date: 20140515
  Serious: Yes (Hospitalization)
  Sender: FDA-Public Use
  Company Number: IL-ROCHE-1267128

PATIENT
  Age: 60 Year
  Sex: Male
  Weight: 72 kg

DRUGS (6)
  1. PEG-INTERFERON ALFA 2A [Suspect]
     Indication: HEPATITIS C
     Route: 058
     Dates: start: 20120927
  2. RIBAVIRIN [Suspect]
     Indication: HEPATITIS C
     Route: 048
     Dates: start: 20120927
  3. TELAPREVIR [Suspect]
     Indication: HEPATITIS C
     Route: 048
     Dates: start: 20120927, end: 20121220
  4. CEFTRIAXONE [Suspect]
     Indication: PNEUMONIA
     Route: 042
     Dates: start: 20130816, end: 20130818
  5. CARDILOC [Concomitant]
     Indication: HYPERTENSION
     Route: 048
     Dates: start: 20130226
  6. AUGMENTIN [Concomitant]
     Indication: PNEUMONIA
     Route: 048
     Dates: start: 20130818, end: 20130825

REACTIONS (2)
  - Dyspnoea [Recovered/Resolved]
  - Pyrexia [Recovered/Resolved]
